FAERS Safety Report 22399912 (Version 3)
Quarter: 2023Q2

REPORT INFORMATION
  Report Type: Report from Study
  Country: CA (occurrence: CA)
  Receive Date: 20230602
  Receipt Date: 20230630
  Transmission Date: 20230722
  Serious: Yes (Other)
  Sender: FDA-Public Use
  Company Number: CA-TEVA-2023-CA-2877577

PATIENT
  Age: 41 Year
  Sex: Female

DRUGS (2)
  1. AJOVY [Suspect]
     Active Substance: FREMANEZUMAB-VFRM
     Indication: Migraine prophylaxis
     Dosage: FORM STRENGTH AND UNIT DOSE: 225MILLIGRAM, 225MG MONTHLY
     Route: 058
     Dates: start: 20230323, end: 20230612
  2. PROPRANOLOL HYDROCHLORIDE [Concomitant]
     Active Substance: PROPRANOLOL HYDROCHLORIDE
     Indication: Product used for unknown indication

REACTIONS (10)
  - Angina pectoris [Unknown]
  - Muscular weakness [Recovered/Resolved]
  - Dyspepsia [Recovered/Resolved]
  - Malaise [Unknown]
  - Somnolence [Unknown]
  - Asthenopia [Unknown]
  - Limb discomfort [Unknown]
  - Fatigue [Not Recovered/Not Resolved]
  - Inappropriate schedule of product administration [Unknown]
  - Drug ineffective [Unknown]

NARRATIVE: CASE EVENT DATE: 20230101
